FAERS Safety Report 4757401-1 (Version None)
Quarter: 2005Q3

REPORT INFORMATION
  Report Type: 
  Country: None (occurrence: None)
  Receive Date: 20050831
  Receipt Date: 20050822
  Transmission Date: 20060218
  Serious: Yes (Other)
  Sender: FDA-Public Use
  Company Number: 200512486EU

PATIENT
  Age: 75 Year
  Sex: Female

DRUGS (7)
  1. NICODERM [Suspect]
     Indication: SMOKING CESSATION THERAPY
     Route: 062
     Dates: start: 20050501, end: 20050501
  2. ASCORBIC ACID [Concomitant]
     Indication: VITAMIN SUPPLEMENTATION
     Route: 048
  3. MULTI-VITAMIN [Concomitant]
     Indication: VITAMIN SUPPLEMENTATION
     Route: 048
  4. OXYCODONE [Concomitant]
     Indication: PAIN
     Route: 048
  5. ERGOCALCIFEROL [Concomitant]
     Indication: VITAMIN SUPPLEMENTATION
     Route: 048
  6. INSULIN [Concomitant]
     Route: 058
  7. MIRTAZAPINE [Concomitant]
     Indication: DEPRESSION
     Dosage: 3U AT NIGHT
     Route: 048

REACTIONS (6)
  - ASTHENIA [None]
  - BREAST CANCER [None]
  - FATIGUE [None]
  - HALLUCINATION [None]
  - NIGHTMARE [None]
  - PANIC REACTION [None]
